FAERS Safety Report 5822265-1 (Version None)
Quarter: 2008Q3

REPORT INFORMATION
  Report Type: 
  Country: None (occurrence: None)
  Receive Date: 20080725
  Receipt Date: 20080717
  Transmission Date: 20090109
  Serious: Yes (Hospitalization)
  Sender: FDA-Public Use
  Company Number: BR-ASTRAZENECA-2008UW14377

PATIENT
  Age: 63 Year
  Sex: Female
  Weight: 47 kg

DRUGS (2)
  1. SELOZOK [Suspect]
     Route: 048
     Dates: start: 20080601, end: 20080716
  2. SELOZOK [Suspect]
     Route: 048
     Dates: start: 20080617

REACTIONS (4)
  - ARRHYTHMIA [None]
  - COUGH [None]
  - DYSPNOEA [None]
  - PNEUMONIA [None]
